FAERS Safety Report 10606453 (Version 1)
Quarter: 2014Q4

REPORT INFORMATION
  Report Type: Spontaneous
  Country: US (occurrence: US)
  Receive Date: 20141125
  Receipt Date: 20141125
  Transmission Date: 20150529
  Serious: Yes (Hospitalization, Other)
  Sender: FDA-Public Use
  Company Number: US-ELI_LILLY_AND_COMPANY-US201411008834

PATIENT
  Age: 45 Year
  Sex: Female

DRUGS (1)
  1. HUMULIN 70/30 [Suspect]
     Active Substance: INSULIN HUMAN
     Indication: TYPE 1 DIABETES MELLITUS
     Dosage: 40 U, BID
     Route: 065

REACTIONS (6)
  - Vision blurred [Unknown]
  - Hepatic cirrhosis [Unknown]
  - Blood glucose increased [Unknown]
  - Fatigue [Unknown]
  - Abdominal pain upper [Unknown]
  - Visual impairment [Unknown]

NARRATIVE: CASE EVENT DATE: 20141119
